FAERS Safety Report 12507898 (Version 3)
Quarter: 2017Q2

REPORT INFORMATION
  Report Type: Spontaneous
  Country: JP (occurrence: JP)
  Receive Date: 20160629
  Receipt Date: 20170412
  Transmission Date: 20170830
  Serious: Yes (Death, Other)
  Sender: FDA-Public Use
  Company Number: JP-REGENERON PHARMACEUTICALS, INC.-2016-18786

PATIENT

DRUGS (7)
  1. EYLEA [Suspect]
     Active Substance: AFLIBERCEPT
     Indication: AGE-RELATED MACULAR DEGENERATION
     Dosage: 2 MG, ONCE
     Route: 031
     Dates: start: 20130124, end: 20130124
  2. EYLEA [Suspect]
     Active Substance: AFLIBERCEPT
     Dosage: EVERY TWO TO THREE MONTHS
     Route: 031
  3. GATIFLO [Concomitant]
     Active Substance: GATIFLOXACIN
     Indication: INFECTION PROPHYLAXIS
     Dosage: UNK
     Route: 047
  4. EYLEA [Suspect]
     Active Substance: AFLIBERCEPT
     Dosage: 2 ML, ONCE
     Route: 031
     Dates: start: 20130402, end: 20130402
  5. EYLEA [Suspect]
     Active Substance: AFLIBERCEPT
     Dosage: 2 ML, ONCE
     Route: 031
     Dates: start: 20130806, end: 20130806
  6. EYLEA [Suspect]
     Active Substance: AFLIBERCEPT
     Dosage: 2 ML, ONCE
     Route: 031
     Dates: start: 20130611, end: 20130611
  7. EYLEA [Suspect]
     Active Substance: AFLIBERCEPT
     Dosage: 2 ML, ONCE
     Route: 031
     Dates: start: 20131106, end: 20131106

REACTIONS (1)
  - Death [Fatal]

NARRATIVE: CASE EVENT DATE: 20131125
